FAERS Safety Report 13843386 (Version 1)
Quarter: 2017Q3

REPORT INFORMATION
  Report Type: Spontaneous
  Country: DE (occurrence: DE)
  Receive Date: 20170808
  Receipt Date: 20170808
  Transmission Date: 20171127
  Serious: Yes (Death, Congenital Anomaly, Other)
  Sender: FDA-Public Use
  Company Number: DE-AUROBINDO PHARMA LTD-AUR-APL-2014-05899

PATIENT
  Sex: Male

DRUGS (3)
  1. CITALOPRAM [Suspect]
     Active Substance: CITALOPRAM HYDROBROMIDE
     Indication: DEPRESSION
     Dosage: 20 MG,ONCE A DAY,
     Route: 064
     Dates: start: 20121212, end: 20130421
  2. MIRTAZAPINE. [Suspect]
     Active Substance: MIRTAZAPINE
     Indication: DEPRESSION
     Dosage: 1 MG,ONCE A DAY,
     Route: 064
  3. FOLSAEURE [Concomitant]
     Active Substance: FOLIC ACID
     Indication: PROPHYLAXIS OF NEURAL TUBE DEFECT
     Dosage: UNK UNK,UNK,
     Route: 064
     Dates: end: 20130320

REACTIONS (5)
  - Neonatal disorder [Not Recovered/Not Resolved]
  - Asplenia [Fatal]
  - Limb reduction defect [Fatal]
  - Truncus arteriosus persistent [Fatal]
  - Foetal exposure during pregnancy [Unknown]
